FAERS Safety Report 4548671-3 (Version None)
Quarter: 2005Q1

REPORT INFORMATION
  Report Type: 
  Country: None (occurrence: None)
  Receive Date: 20050106
  Receipt Date: 20041228
  Transmission Date: 20050727
  Serious: Yes (Disabling)
  Sender: FDA-Public Use
  Company Number: 2004UW20825

PATIENT
  Age: 72 Year
  Sex: Female
  Weight: 48.5349 kg

DRUGS (5)
  1. IRESSA [Suspect]
     Indication: NON-SMALL CELL LUNG CANCER
     Dates: start: 20040927
  2. DIGITEK [Concomitant]
  3. PROTONIX [Concomitant]
  4. HUMIBID [Concomitant]
  5. SYNTHROID [Concomitant]

REACTIONS (2)
  - LUNG NEOPLASM MALIGNANT [None]
  - MALIGNANT NEOPLASM PROGRESSION [None]
